FAERS Safety Report 8026380-6 (Version None)
Quarter: 2012Q1

REPORT INFORMATION
  Report Type: 
  Country: None (occurrence: None)
  Receive Date: 20120105
  Receipt Date: 20120103
  Transmission Date: 20120608
  Serious: Yes (Hospitalization, Other)
  Sender: FDA-Public Use
  Company Number: US-ABBOTT-11P-163-0882042-00

PATIENT
  Sex: Male
  Weight: 83 kg

DRUGS (3)
  1. PREDNISONE TAB [Concomitant]
     Indication: CROHN'S DISEASE
     Dosage: TAPER - CURRENTLY 15 MG DAILY
  2. UNKNOWN MEDICATIONS [Concomitant]
     Indication: PRODUCT USED FOR UNKNOWN INDICATION
  3. HUMIRA [Suspect]
     Indication: CROHN'S DISEASE
     Dates: start: 20111011, end: 20111104

REACTIONS (6)
  - SMALL INTESTINAL OBSTRUCTION [None]
  - CARCINOID TUMOUR [None]
  - ASCITES [None]
  - CHILLS [None]
  - BLOOD PRESSURE DECREASED [None]
  - PYREXIA [None]
